FAERS Safety Report 8920369 (Version 1)
Quarter: 2012Q4

REPORT INFORMATION
  Report Type: 
  Country: ES (occurrence: ES)
  Receive Date: 20121121
  Receipt Date: 20121121
  Transmission Date: 20130627
  Serious: Yes (Other)
  Sender: FDA-Public Use
  Company Number: ES-ROCHE-1157926

PATIENT
  Age: 57 Year
  Sex: Male
  Weight: 70 kg

DRUGS (3)
  1. RITUXIMAB [Suspect]
     Indication: NON-HODGKIN^S LYMPHOMA
     Dosage: strength 100/500 mg
     Route: 042
     Dates: start: 20120507, end: 20120823
  2. RITUXIMAB [Suspect]
     Dosage: strength 100/500 mg
     Route: 042
     Dates: start: 20121116, end: 20121116
  3. BENDAMUSTINE [Concomitant]
     Indication: LYMPHOMA
     Route: 042
     Dates: start: 20121115

REACTIONS (3)
  - Discomfort [Recovered/Resolved]
  - Ear pain [Recovered/Resolved]
  - Unevaluable event [Unknown]
